FAERS Safety Report 8309203-7 (Version None)
Quarter: 2012Q2

REPORT INFORMATION
  Report Type: 
  Country: None (occurrence: None)
  Receive Date: 20120424
  Receipt Date: 20120423
  Transmission Date: 20120825
  Serious: Yes (Death, Other)
  Sender: FDA-Public Use
  Company Number: PHHY2012FR034375

PATIENT
  Age: 62 Year
  Sex: Female

DRUGS (11)
  1. BUDESONIDE [Concomitant]
  2. FLUOXETINE [Concomitant]
     Dosage: 20 MG, UNK
  3. ALBUTEROL [Concomitant]
  4. FUROSEMIDE, SPIRONOLACTONE [Suspect]
  5. DILTIAZEM HCL [Suspect]
     Dosage: UNK
  6. CLONAZEPAM [Concomitant]
     Dosage: 0.5 MG, UNK
  7. RABEPRAZOLE SODIUM [Concomitant]
     Dosage: 20 MG, UNK
  8. PROCORALAN [Suspect]
     Indication: CARDIAC FAILURE
     Dosage: 5 MG, BID
     Dates: start: 20100909
  9. LORMETAZEPAM [Concomitant]
     Dosage: 8 MG, UNK
  10. METFORMIN HCL [Concomitant]
     Dosage: 1700 MG, UNK
  11. CETIRIZINE [Concomitant]
     Dosage: 10 MG, UNK

REACTIONS (12)
  - ATRIAL FIBRILLATION [None]
  - PALLOR [None]
  - COMA [None]
  - BRAIN DEATH [None]
  - SYNCOPE [None]
  - VENTRICULAR TACHYCARDIA [None]
  - ACIDOSIS [None]
  - HYPOKALAEMIA [None]
  - HEADACHE [None]
  - TORSADE DE POINTES [None]
  - ELECTROCARDIOGRAM QT PROLONGED [None]
  - CARDIAC ARREST [None]
